FAERS Safety Report 20916969 (Version 1)
Quarter: 2022Q2

REPORT INFORMATION
  Report Type: Spontaneous
  Country: IT (occurrence: IT)
  Receive Date: 20220606
  Receipt Date: 20220606
  Transmission Date: 20220721
  Serious: Yes (Hospitalization, Other)
  Sender: FDA-Public Use
  Company Number: IT-IPCA LABORATORIES LIMITED-IPC-2022-IT-000669

PATIENT

DRUGS (4)
  1. TRAMADOL HYDROCHLORIDE [Suspect]
     Active Substance: TRAMADOL HYDROCHLORIDE
     Indication: Abdominal pain
     Dosage: UNK
     Route: 065
  2. ACETAMINOPHEN [Concomitant]
     Active Substance: ACETAMINOPHEN
     Indication: Abdominal pain
     Dosage: UNK
     Route: 065
  3. ALIZAPRIDE [Concomitant]
     Active Substance: ALIZAPRIDE
     Indication: Vomiting
     Dosage: UNK
     Route: 065
  4. KETOROLAC [Concomitant]
     Active Substance: KETOROLAC TROMETHAMINE
     Indication: Abdominal pain
     Dosage: UNK
     Route: 065

REACTIONS (14)
  - Stress cardiomyopathy [Recovering/Resolving]
  - Kounis syndrome [Recovering/Resolving]
  - Hypertension [Recovering/Resolving]
  - Rash [Recovering/Resolving]
  - Headache [Recovering/Resolving]
  - Acute pulmonary oedema [Recovering/Resolving]
  - Left ventricular dysfunction [Recovering/Resolving]
  - Dyspnoea [Recovering/Resolving]
  - Orthopnoea [Recovering/Resolving]
  - Pulmonary congestion [Recovering/Resolving]
  - Hypokinesia [Recovering/Resolving]
  - Leukocytosis [Recovering/Resolving]
  - Cardiac failure [Recovering/Resolving]
  - Mitral valve incompetence [Recovering/Resolving]
